FAERS Safety Report 16337585 (Version 3)
Quarter: 2019Q2

REPORT INFORMATION
  Report Type: Spontaneous
  Country: RO (occurrence: RO)
  Receive Date: 20190521
  Receipt Date: 20190620
  Transmission Date: 20190711
  Serious: Yes (Hospitalization, Other)
  Sender: FDA-Public Use
  Company Number: PHHY2019RO111561

PATIENT
  Age: 61 Year
  Sex: Male

DRUGS (2)
  1. METOPROLOL. [Suspect]
     Active Substance: METOPROLOL
     Dosage: 50 MG, QD DOWN-TITRATION WAS PERFORMED OVER THE FOLLOWING WEEKS TO AS LOW AS
     Route: 048
  2. METOPROLOL. [Suspect]
     Active Substance: METOPROLOL
     Indication: CORONARY ARTERY DISEASE
     Dosage: 200 MG, QD
     Route: 065

REACTIONS (4)
  - Syncope [Unknown]
  - Sinus arrest [Recovered/Resolved]
  - Dizziness [Unknown]
  - Sinus node dysfunction [Unknown]
